FAERS Safety Report 9922674 (Version 1)
Quarter: 2014Q1

REPORT INFORMATION
  Report Type: Report from Study
  Country: CA (occurrence: CA)
  Receive Date: 20140225
  Receipt Date: 20140225
  Transmission Date: 20141002
  Serious: Yes (Hospitalization)
  Sender: FDA-Public Use
  Company Number: CA-BRISTOL-MYERS SQUIBB COMPANY-20287041

PATIENT
  Age: 59 Year
  Sex: Male

DRUGS (7)
  1. ORENCIA [Suspect]
     Indication: RHEUMATOID ARTHRITIS
     Dosage: 1DF: 750 UNIT NOS
     Dates: start: 20140114
  2. ENDOCET [Concomitant]
  3. MORPHINE [Concomitant]
  4. DEMEROL [Concomitant]
  5. NITROGLYCERIN [Concomitant]
  6. METFORMIN [Concomitant]
  7. ASPIRIN [Concomitant]

REACTIONS (1)
  - Myocardial infarction [Unknown]
